FAERS Safety Report 6804657-7 (Version None)
Quarter: 2010Q2

REPORT INFORMATION
  Report Type: 
  Country: None (occurrence: None)
  Receive Date: 20100628
  Receipt Date: 20080205
  Transmission Date: 20101027
  Serious: No
  Sender: FDA-Public Use
  Company Number: US-PFIZER INC-2007028971

PATIENT
  Sex: Male

DRUGS (5)
  1. XALATAN [Suspect]
     Indication: GLAUCOMA
     Dates: start: 20070404
  2. BRIMONIDINE [Suspect]
     Indication: GLAUCOMA
     Dates: start: 20070404
  3. TRUSOPT [Suspect]
     Indication: GLAUCOMA
     Dates: start: 20070427
  4. RITALIN [Concomitant]
     Route: 048
  5. PRAVACHOL [Concomitant]
     Route: 048

REACTIONS (4)
  - CONJUNCTIVITIS INFECTIVE [None]
  - EYE BURNS [None]
  - LACRIMATION INCREASED [None]
  - OCULAR HYPERAEMIA [None]
